FAERS Safety Report 25591181 (Version 1)
Quarter: 2025Q3

REPORT INFORMATION
  Report Type: Spontaneous
  Country: US (occurrence: US)
  Receive Date: 20250722
  Receipt Date: 20250722
  Transmission Date: 20251021
  Serious: Yes (Other)
  Sender: ALEXION PHARMACEUTICALS
  Company Number: US-AstraZeneca-CH-00910390A

PATIENT
  Sex: Male

DRUGS (2)
  1. FASENRA [Suspect]
     Active Substance: BENRALIZUMAB
     Route: 065
  2. FASENRA [Suspect]
     Active Substance: BENRALIZUMAB

REACTIONS (18)
  - Swelling face [Unknown]
  - Mouth swelling [Unknown]
  - Swollen tongue [Unknown]
  - Dyspnoea [Unknown]
  - Syncope [Unknown]
  - Dizziness [Unknown]
  - Hypotension [Unknown]
  - Rash [Unknown]
  - Urticaria [Unknown]
  - Pollakiuria [Unknown]
  - Fatigue [Unknown]
  - Hypoaesthesia [Unknown]
  - Anxiety [Unknown]
  - Feeling abnormal [Unknown]
  - Hyperventilation [Unknown]
  - Visual impairment [Unknown]
  - Dizziness [Unknown]
  - Bradyphrenia [Unknown]
